FAERS Safety Report 12421077 (Version 1)
Quarter: 2016Q2

REPORT INFORMATION
  Report Type: Spontaneous
  Country: JP (occurrence: JP)
  Receive Date: 20160531
  Receipt Date: 20160531
  Transmission Date: 20160815
  Serious: Yes (Other)
  Sender: FDA-Public Use
  Company Number: JP-BAYER-2016-102628

PATIENT
  Sex: Female

DRUGS (1)
  1. YAZ [Suspect]
     Active Substance: DROSPIRENONE\ETHINYL ESTRADIOL
     Dosage: UNK
     Route: 048
     Dates: start: 20160511

REACTIONS (4)
  - Chronic hepatitis [None]
  - Constipation [None]
  - Diarrhoea [None]
  - Pyrexia [None]

NARRATIVE: CASE EVENT DATE: 201605
